FAERS Safety Report 19979048 (Version 2)
Quarter: 2022Q2

REPORT INFORMATION
  Report Type: Report from Study
  Country: JP (occurrence: JP)
  Receive Date: 20211020
  Receipt Date: 20220428
  Transmission Date: 20220721
  Serious: Yes (Death)
  Sender: FDA-Public Use
  Company Number: JP-PFIZER INC-202101380221

PATIENT

DRUGS (3)
  1. OXALIPLATIN [Suspect]
     Active Substance: OXALIPLATIN
     Indication: Colorectal cancer metastatic
     Dosage: UNK, CYCLIC (EVERY 2 WEEKS, THREE COURSES OF MFOLFOX6)
  2. LEUCOVORIN CALCIUM [Suspect]
     Active Substance: LEUCOVORIN CALCIUM
     Indication: Colorectal cancer metastatic
     Dosage: UNK, CYCLIC (EVERY 2 WEEKS, THREE COURSES OF MFOLFOX6)
  3. FLUOROURACIL [Suspect]
     Active Substance: FLUOROURACIL
     Indication: Colorectal cancer metastatic
     Dosage: UNK, CYCLIC (EVERY 2 WEEKS, THREE COURSES OF MFOLFOX6)

REACTIONS (1)
  - Death [Fatal]
